FAERS Safety Report 18685185 (Version 2)
Quarter: 2021Q1

REPORT INFORMATION
  Report Type: Spontaneous
  Country: US (occurrence: US)
  Receive Date: 20201230
  Receipt Date: 20210202
  Transmission Date: 20210419
  Serious: No
  Sender: FDA-Public Use
  Company Number: US-VERTEX PHARMACEUTICALS-2020-025380

PATIENT
  Age: 26 Year
  Sex: Male
  Weight: 86 kg

DRUGS (9)
  1. PULMOZYME [Concomitant]
     Active Substance: DORNASE ALFA
     Dosage: 1MG/ML SOLUTION
  2. TRESIBA [Concomitant]
     Active Substance: INSULIN DEGLUDEC
  3. HYPERSAL [Concomitant]
     Active Substance: SODIUM CHLORIDE
     Dosage: 7 %
  4. TRIKAFTA [Suspect]
     Active Substance: ELEXACAFTOR\IVACAFTOR\TEZACAFTOR
     Indication: CYSTIC FIBROSIS
     Dosage: 2 TAB (ELEXA100MG/TEZA50MG/IVA75MG) AMAND 1 TAB (IVA 150MG)PM
     Route: 048
     Dates: start: 201910
  5. BETHKIS [Concomitant]
     Active Substance: TOBRAMYCIN
     Dosage: 300MG/4ML
  6. VITAMIN D3 [Concomitant]
     Active Substance: CHOLECALCIFEROL
     Dosage: 1250 MICROGRAM
  7. PROAIR HFA [Concomitant]
     Active Substance: ALBUTEROL SULFATE
     Dosage: 90 MICROGRAM
  8. ZENPEP [Concomitant]
     Active Substance: PANCRELIPASE AMYLASE\PANCRELIPASE LIPASE\PANCRELIPASE PROTEASE
     Dosage: 5K?17K?24K
  9. METFORMIN HCL [Concomitant]
     Active Substance: METFORMIN HYDROCHLORIDE
     Dosage: 500 MG

REACTIONS (1)
  - COVID-19 [Recovered/Resolved]

NARRATIVE: CASE EVENT DATE: 202012
